FAERS Safety Report 17747492 (Version 1)
Quarter: 2020Q2

REPORT INFORMATION
  Report Type: Spontaneous
  Country: SE (occurrence: SE)
  Receive Date: 20200505
  Receipt Date: 20200505
  Transmission Date: 20200714
  Serious: Yes (Life-Threatening, Hospitalization)
  Sender: FDA-Public Use
  Company Number: SE-NOVOPROD-725702

PATIENT
  Age: 38 Year
  Sex: Male

DRUGS (5)
  1. COLCHICINE. [Concomitant]
     Active Substance: COLCHICINE
     Dosage: 1000 ?G, QD
     Dates: start: 20190531
  2. ALVEDON [Concomitant]
     Active Substance: ACETAMINOPHEN
     Dosage: 3000 MG, QD
     Dates: start: 20200322
  3. NOVORAPID [Suspect]
     Active Substance: INSULIN ASPART
     Indication: TYPE 2 DIABETES MELLITUS
     Dosage: DOSAGE ^4 + 4 + 4 + 0 E^
     Route: 058
     Dates: start: 20200318
  4. OXASCAND [Concomitant]
     Active Substance: OXAZEPAM
     Dosage: 1 IF NECESSARY
     Dates: start: 20200320
  5. JARDIANCE [Suspect]
     Active Substance: EMPAGLIFLOZIN
     Indication: TYPE 2 DIABETES MELLITUS
     Dosage: 25 MG, QD
     Route: 048
     Dates: end: 20200323

REACTIONS (1)
  - Diabetic ketoacidosis [Recovered/Resolved]

NARRATIVE: CASE EVENT DATE: 20200324
